FAERS Safety Report 20211003 (Version 1)
Quarter: 2021Q4

REPORT INFORMATION
  Report Type: Spontaneous
  Country: AU (occurrence: AU)
  Receive Date: 20211221
  Receipt Date: 20211221
  Transmission Date: 20220303
  Serious: Yes (Other)
  Sender: FDA-Public Use
  Company Number: AU-ALKEM LABORATORIES LIMITED-AU-ALKEM-2021-00416

PATIENT
  Age: 66 Year
  Sex: Female

DRUGS (4)
  1. ACYCLOVIR [Suspect]
     Active Substance: ACYCLOVIR
     Indication: Product used for unknown indication
     Dosage: UNK
     Route: 065
  2. MYCOPHENOLATE MOFETIL [Suspect]
     Active Substance: MYCOPHENOLATE MOFETIL
     Indication: Product used for unknown indication
     Dosage: UNK
     Route: 065
  3. PREDNISOLONE [Suspect]
     Active Substance: PREDNISOLONE
     Indication: Product used for unknown indication
     Dosage: UNK
     Route: 065
  4. EVEROLIMUS [Suspect]
     Active Substance: EVEROLIMUS
     Indication: Product used for unknown indication
     Dosage: UNK
     Route: 065

REACTIONS (14)
  - Hepatitis viral [Unknown]
  - Thrombocytopenia [Unknown]
  - Pancreatitis viral [Unknown]
  - Agitation [Unknown]
  - Chest pain [Unknown]
  - Confusional state [Unknown]
  - Abdominal pain [Unknown]
  - Hypotension [Unknown]
  - Rash vesicular [Unknown]
  - Somnolence [Unknown]
  - Tachycardia [Unknown]
  - Varicella zoster virus infection [Unknown]
  - Drug ineffective [Unknown]
  - Product use in unapproved indication [Unknown]
